FAERS Safety Report 6653886-4 (Version None)
Quarter: 2010Q1

REPORT INFORMATION
  Report Type: 
  Country: None (occurrence: None)
  Receive Date: 20100326
  Receipt Date: 20100313
  Transmission Date: 20100710
  Serious: Yes (Other)
  Sender: FDA-Public Use
  Company Number: US-JNJFOC-20090707561

PATIENT
  Sex: Female
  Weight: 56.7 kg

DRUGS (2)
  1. LEVAQUIN [Suspect]
     Indication: APPENDICECTOMY
     Route: 042
  2. ADVAIR DISKUS 100/50 [Concomitant]
     Indication: ASTHMA
     Route: 055

REACTIONS (4)
  - BLOOD PRESSURE DECREASED [None]
  - DRUG ADMINISTRATION ERROR [None]
  - HYPOACUSIS [None]
  - VOMITING [None]
